FAERS Safety Report 20211866 (Version 1)
Quarter: 2021Q4

REPORT INFORMATION
  Report Type: Spontaneous
  Country: US (occurrence: None)
  Receive Date: 20211221
  Receipt Date: 20211221
  Transmission Date: 20220303
  Serious: Yes (Disabling)
  Sender: FDA-Public Use
  Company Number: None

PATIENT
  Age: 32 Year
  Sex: Female
  Weight: 72 kg

DRUGS (1)
  1. TERBUTALINE [Suspect]
     Active Substance: TERBUTALINE
     Indication: Postponement of preterm delivery
     Dosage: FREQUENCY : EVERY 4 HOURS;?
     Route: 048

REACTIONS (4)
  - Maternal exposure during pregnancy [None]
  - Foetal exposure during pregnancy [None]
  - Autonomic nervous system imbalance [None]
  - Mental disorder [None]

NARRATIVE: CASE EVENT DATE: 19890828
